FAERS Safety Report 4983648-5 (Version None)
Quarter: 2006Q2

REPORT INFORMATION
  Report Type: 
  Country: None (occurrence: None)
  Receive Date: 20060425
  Receipt Date: 20060425
  Transmission Date: 20061013
  Serious: Yes (Other)
  Sender: FDA-Public Use
  Company Number: None

PATIENT
  Age: 69 Year
  Sex: Male
  Weight: 117 kg

DRUGS (11)
  1. PRAVASTATIN [Suspect]
  2. DORZOLAMIDE / TIMOLOL [Concomitant]
  3. GLYBURIDE AND METFORMIN HCL [Concomitant]
  4. FISH OIL [Concomitant]
  5. BRIMONIDINE TARTRATE [Concomitant]
  6. GEMFIBROZIL [Concomitant]
  7. HYPROMELLOSE [Concomitant]
  8. PRAVASTATIN SODIUM [Concomitant]
  9. ASPIRIN [Concomitant]
  10. LISINOPRIL [Concomitant]
  11. TRAVOPROST [Concomitant]

REACTIONS (1)
  - RASH [None]
